FAERS Safety Report 17175276 (Version 1)
Quarter: 2019Q4

REPORT INFORMATION
  Report Type: Spontaneous
  Country: IT (occurrence: IT)
  Receive Date: 20191219
  Receipt Date: 20191219
  Transmission Date: 20200122
  Serious: Yes (Hospitalization)
  Sender: FDA-Public Use
  Company Number: IT-MYLANLABS-2019M1126179

PATIENT
  Age: 77 Year
  Sex: Female

DRUGS (5)
  1. FLUOROURACIL. [Suspect]
     Active Substance: FLUOROURACIL
     Indication: ADENOCARCINOMA
     Dosage: ON DAYS 1,2 EVERY 14 DAYS
     Route: 065
  2. IRINOTECAN [Suspect]
     Active Substance: IRINOTECAN
     Indication: ADENOCARCINOMA
     Dosage: RECEIVED 4 DOSES OF IRINOTECAN
     Route: 065
  3. OXALIPLATIN. [Suspect]
     Active Substance: OXALIPLATIN
     Indication: ADENOCARCINOMA
     Dosage: ON DAY 1 EVERY 14 DAYS; RECEIVED NINE CYCLE
     Route: 065
  4. FLUOROURACIL. [Suspect]
     Active Substance: FLUOROURACIL
     Dosage: BETWEEN MEAL 48 HOURS,EVERY 14 DAYS..
     Route: 065
  5. LEUCOVORIN                         /00566701/ [Suspect]
     Active Substance: LEUCOVORIN
     Indication: ADENOCARCINOMA
     Dosage: ON DAYS 1,2 EVERY 14 DAYS; RECEIVED NINE CYCLE
     Route: 065

REACTIONS (2)
  - Diarrhoea [Unknown]
  - Gastrointestinal toxicity [Unknown]

NARRATIVE: CASE EVENT DATE: 201712
